FAERS Safety Report 9683930 (Version 1)
Quarter: 2013Q4

REPORT INFORMATION
  Report Type: Spontaneous
  Country: US (occurrence: US)
  Receive Date: 20131112
  Receipt Date: 20131112
  Transmission Date: 20140711
  Serious: Yes (Other)
  Sender: FDA-Public Use
  Company Number: US-MALLINCKRODT-T201304658

PATIENT
  Age: 69 Year
  Sex: Female
  Weight: 58.96 kg

DRUGS (6)
  1. FENTANYL TRANSDERMAL SYSTEM [Suspect]
     Indication: THROAT CANCER
     Dosage: 25 MCG/HR, Q 3 DAYS
     Route: 062
     Dates: start: 20131015, end: 20131018
  2. SOMA [Concomitant]
     Dosage: UNK
     Route: 065
  3. MARINOL                            /00897601/ [Concomitant]
     Dosage: UNK
     Route: 065
  4. VICODIN [Concomitant]
     Dosage: UNK
     Route: 065
  5. VALIUM [Concomitant]
     Dosage: UNK
     Route: 065
  6. CLONIDINE [Concomitant]
     Dosage: UNK
     Route: 065

REACTIONS (2)
  - Convulsion [Recovered/Resolved]
  - Urticaria [Recovered/Resolved]
